FAERS Safety Report 17435650 (Version 10)
Quarter: 2021Q3

REPORT INFORMATION
  Report Type: Spontaneous
  Country: GB (occurrence: GB)
  Receive Date: 20200219
  Receipt Date: 20210830
  Transmission Date: 20211014
  Serious: Yes (Death, Hospitalization, Other)
  Sender: FDA-Public Use
  Company Number: GB-MYLANLABS-2020M1018141

PATIENT
  Age: 39 Year
  Sex: Male

DRUGS (17)
  1. THIOPENTAL SODIUM. [Suspect]
     Active Substance: THIOPENTAL SODIUM
     Dosage: UNK
     Route: 042
  2. TOPIRAMATE. [Suspect]
     Active Substance: TOPIRAMATE
     Indication: STATUS EPILEPTICUS
     Dosage: UNKNOWN
     Route: 065
  3. PHENOBARBITONE                     /00023201/ [Suspect]
     Active Substance: PHENOBARBITAL
     Indication: STATUS EPILEPTICUS
     Dosage: UNKNOWN
     Route: 065
  4. THIOPENTAL SODIUM. [Suspect]
     Active Substance: THIOPENTAL SODIUM
     Indication: STATUS EPILEPTICUS
     Dosage: 4.8 MILLIGRAM/KILOGRAM, QH
     Route: 042
     Dates: start: 20161114, end: 20170109
  5. MIDAZOLAM. [Suspect]
     Active Substance: MIDAZOLAM
     Indication: STATUS EPILEPTICUS
     Dosage: 20 MILLIGRAM, QH, ALL SEDATION STOPPED 28/01
     Route: 042
     Dates: end: 20170128
  6. PREDNISOLONE. [Suspect]
     Active Substance: PREDNISOLONE
     Indication: STATUS EPILEPTICUS
     Dosage: HIGH DOSE
     Route: 065
  7. FENTANYL. [Suspect]
     Active Substance: FENTANYL
     Indication: STATUS EPILEPTICUS
     Dosage: 100 MICROGRAM, QH (ALL SEDATION STOPPED 28/01)
     Route: 042
     Dates: end: 20170128
  8. PROPOFOL. [Suspect]
     Active Substance: PROPOFOL
     Dosage: UNK
  9. CLONAZEPAM. [Concomitant]
     Active Substance: CLONAZEPAM
     Dosage: UNKNOWN
     Route: 065
  10. FENTANYL. [Suspect]
     Active Substance: FENTANYL
     Dosage: UNK
     Route: 042
  11. LEVETIRACETAM. [Concomitant]
     Active Substance: LEVETIRACETAM
     Indication: STATUS EPILEPTICUS
     Dosage: UNKNOWN
     Route: 065
  12. PHENYTOIN. [Concomitant]
     Active Substance: PHENYTOIN
     Indication: STATUS EPILEPTICUS
     Dosage: UNKNOWN
     Route: 065
  13. CLONAZEPAM. [Concomitant]
     Active Substance: CLONAZEPAM
     Indication: STATUS EPILEPTICUS
     Dosage: UNKNOWN
     Route: 065
  14. VALPROIC ACID. [Suspect]
     Active Substance: VALPROIC ACID
     Indication: STATUS EPILEPTICUS
     Dosage: UNKNOWN
     Route: 065
  15. PROPOFOL. [Suspect]
     Active Substance: PROPOFOL
     Indication: STATUS EPILEPTICUS
     Dosage: 1 MILLIGRAM/KILOGRAM, QH, ALL SEDATION STOPPED 28/01
     Route: 065
     Dates: end: 20170128
  16. VALPROATE SODIUM. [Suspect]
     Active Substance: VALPROATE SODIUM
     Indication: STATUS EPILEPTICUS
     Dosage: UNK
     Route: 065
  17. PHENOBARBITAL. [Concomitant]
     Active Substance: PHENOBARBITAL
     Indication: STATUS EPILEPTICUS
     Dosage: UNK
     Route: 065

REACTIONS (18)
  - Hepatitis fulminant [Fatal]
  - Off label use [Unknown]
  - Product used for unknown indication [Unknown]
  - Sepsis [Fatal]
  - Multiple organ dysfunction syndrome [Fatal]
  - Abdominal wall haematoma [Fatal]
  - Coagulopathy [Fatal]
  - Deep vein thrombosis [Fatal]
  - Pseudomembranous colitis [Fatal]
  - Metabolic acidosis [Fatal]
  - Malabsorption [Fatal]
  - Intentional product use issue [Unknown]
  - Product use in unapproved indication [Unknown]
  - Infection [Fatal]
  - Intensive care unit acquired weakness [Fatal]
  - Autonomic nervous system imbalance [Fatal]
  - Colitis ischaemic [Fatal]
  - Acute kidney injury [Fatal]
